FAERS Safety Report 4269898-4 (Version None)
Quarter: 2004Q1

REPORT INFORMATION
  Report Type: 
  Country: None (occurrence: None)
  Receive Date: 20040112
  Receipt Date: 20040112
  Transmission Date: 20041129
  Serious: Yes (Hospitalization)
  Sender: FDA-Public Use
  Company Number: None

PATIENT
  Age: 58 Year
  Sex: Male

DRUGS (11)
  1. BACTRIM DS [Suspect]
     Indication: INFECTION
     Dosage: 1 TAB BID
     Dates: start: 20030730
  2. NAPROXEN [Suspect]
     Indication: PAIN
     Dosage: 375 MG TID
     Dates: start: 19990401
  3. FEXOFENADINE [Concomitant]
  4. GLYBURIDE [Concomitant]
  5. ASPIRIN [Concomitant]
  6. METOPROLOL [Concomitant]
  7. FUROSEMIDE [Concomitant]
  8. KCL TAB [Concomitant]
  9. PLAVIX [Concomitant]
  10. TERAZOSIN HCL [Concomitant]
  11. NITROGLYCERIN [Concomitant]

REACTIONS (1)
  - RENAL FAILURE ACUTE [None]
